FAERS Safety Report 7533081-7 (Version None)
Quarter: 2011Q2

REPORT INFORMATION
  Report Type: 
  Country: None (occurrence: None)
  Receive Date: 20110608
  Receipt Date: 20110603
  Transmission Date: 20111010
  Serious: Yes (Death, Other)
  Sender: FDA-Public Use
  Company Number: JP-CEPHALON-2011000478

PATIENT
  Sex: Female
  Weight: 36 kg

DRUGS (11)
  1. OMEPRAZOLE [Concomitant]
     Dates: end: 20110124
  2. POTASSIUM CHLORIDE [Concomitant]
     Dates: end: 20110125
  3. MORPHINE [Concomitant]
     Dates: end: 20110124
  4. PREDNISOLONE SODIUM SUCCINATE INJ [Concomitant]
     Dates: end: 20110124
  5. SODIUM BICARBONATE [Concomitant]
     Dates: start: 20110122, end: 20110123
  6. BENDAMUSTINE HCL [Suspect]
     Indication: B-CELL LYMPHOMA
     Route: 042
     Dates: start: 20110119, end: 20110120
  7. BROMHEXINE HYDROCHLORIDE [Concomitant]
     Dates: end: 20110124
  8. GRANISETRON HCL [Concomitant]
     Dates: start: 20110119, end: 20110120
  9. CEFEPIME [Concomitant]
     Dates: end: 20110121
  10. INSULIN [Concomitant]
     Dates: end: 20110125
  11. PANTHENOL [Concomitant]
     Dates: end: 20110124

REACTIONS (4)
  - B-CELL LYMPHOMA [None]
  - HYPERCHLORAEMIA [None]
  - HYPERNATRAEMIA [None]
  - NEUTROPENIA [None]
